FAERS Safety Report 23861193 (Version 1)
Quarter: 2024Q2

REPORT INFORMATION
  Report Type: Spontaneous
  Country: US (occurrence: US)
  Receive Date: 20240516
  Receipt Date: 20240516
  Transmission Date: 20240716
  Serious: No
  Sender: FDA-Public Use
  Company Number: US-ELI_LILLY_AND_COMPANY-US202405006620

PATIENT
  Age: 47 Year
  Sex: Female

DRUGS (120)
  1. MOUNJARO [Suspect]
     Active Substance: TIRZEPATIDE
     Indication: Glucose tolerance impaired
     Dosage: 2.5 MG, UNKNOWN
     Route: 058
     Dates: start: 2023
  2. MOUNJARO [Suspect]
     Active Substance: TIRZEPATIDE
     Indication: Glucose tolerance impaired
     Dosage: 2.5 MG, UNKNOWN
     Route: 058
     Dates: start: 2023
  3. MOUNJARO [Suspect]
     Active Substance: TIRZEPATIDE
     Indication: Glucose tolerance impaired
     Dosage: 2.5 MG, UNKNOWN
     Route: 058
     Dates: start: 2023
  4. MOUNJARO [Suspect]
     Active Substance: TIRZEPATIDE
     Indication: Glucose tolerance impaired
     Dosage: 2.5 MG, UNKNOWN
     Route: 058
     Dates: start: 2023
  5. MOUNJARO [Suspect]
     Active Substance: TIRZEPATIDE
     Indication: Body mass index increased
  6. MOUNJARO [Suspect]
     Active Substance: TIRZEPATIDE
     Indication: Body mass index increased
  7. MOUNJARO [Suspect]
     Active Substance: TIRZEPATIDE
     Indication: Body mass index increased
  8. MOUNJARO [Suspect]
     Active Substance: TIRZEPATIDE
     Indication: Body mass index increased
  9. MOUNJARO [Suspect]
     Active Substance: TIRZEPATIDE
     Indication: Gestational diabetes
  10. MOUNJARO [Suspect]
     Active Substance: TIRZEPATIDE
     Indication: Gestational diabetes
  11. MOUNJARO [Suspect]
     Active Substance: TIRZEPATIDE
     Indication: Gestational diabetes
  12. MOUNJARO [Suspect]
     Active Substance: TIRZEPATIDE
     Indication: Gestational diabetes
  13. MOUNJARO [Suspect]
     Active Substance: TIRZEPATIDE
     Indication: Stress
  14. MOUNJARO [Suspect]
     Active Substance: TIRZEPATIDE
     Indication: Stress
  15. MOUNJARO [Suspect]
     Active Substance: TIRZEPATIDE
     Indication: Stress
  16. MOUNJARO [Suspect]
     Active Substance: TIRZEPATIDE
     Indication: Stress
  17. MOUNJARO [Suspect]
     Active Substance: TIRZEPATIDE
     Indication: Anxiety
  18. MOUNJARO [Suspect]
     Active Substance: TIRZEPATIDE
     Indication: Anxiety
  19. MOUNJARO [Suspect]
     Active Substance: TIRZEPATIDE
     Indication: Anxiety
  20. MOUNJARO [Suspect]
     Active Substance: TIRZEPATIDE
     Indication: Anxiety
  21. MOUNJARO [Suspect]
     Active Substance: TIRZEPATIDE
     Indication: Glucose tolerance impaired
     Dosage: 5 MG, UNKNOWN
     Route: 058
  22. MOUNJARO [Suspect]
     Active Substance: TIRZEPATIDE
     Indication: Glucose tolerance impaired
     Dosage: 5 MG, UNKNOWN
     Route: 058
  23. MOUNJARO [Suspect]
     Active Substance: TIRZEPATIDE
     Indication: Glucose tolerance impaired
     Dosage: 5 MG, UNKNOWN
     Route: 058
  24. MOUNJARO [Suspect]
     Active Substance: TIRZEPATIDE
     Indication: Glucose tolerance impaired
     Dosage: 5 MG, UNKNOWN
     Route: 058
  25. MOUNJARO [Suspect]
     Active Substance: TIRZEPATIDE
     Indication: Body mass index increased
  26. MOUNJARO [Suspect]
     Active Substance: TIRZEPATIDE
     Indication: Body mass index increased
  27. MOUNJARO [Suspect]
     Active Substance: TIRZEPATIDE
     Indication: Body mass index increased
  28. MOUNJARO [Suspect]
     Active Substance: TIRZEPATIDE
     Indication: Body mass index increased
  29. MOUNJARO [Suspect]
     Active Substance: TIRZEPATIDE
     Indication: Gestational diabetes
  30. MOUNJARO [Suspect]
     Active Substance: TIRZEPATIDE
     Indication: Gestational diabetes
  31. MOUNJARO [Suspect]
     Active Substance: TIRZEPATIDE
     Indication: Gestational diabetes
  32. MOUNJARO [Suspect]
     Active Substance: TIRZEPATIDE
     Indication: Gestational diabetes
  33. MOUNJARO [Suspect]
     Active Substance: TIRZEPATIDE
     Indication: Anxiety
  34. MOUNJARO [Suspect]
     Active Substance: TIRZEPATIDE
     Indication: Anxiety
  35. MOUNJARO [Suspect]
     Active Substance: TIRZEPATIDE
     Indication: Anxiety
  36. MOUNJARO [Suspect]
     Active Substance: TIRZEPATIDE
     Indication: Anxiety
  37. MOUNJARO [Suspect]
     Active Substance: TIRZEPATIDE
     Indication: Stress
  38. MOUNJARO [Suspect]
     Active Substance: TIRZEPATIDE
     Indication: Stress
  39. MOUNJARO [Suspect]
     Active Substance: TIRZEPATIDE
     Indication: Stress
  40. MOUNJARO [Suspect]
     Active Substance: TIRZEPATIDE
     Indication: Stress
  41. MOUNJARO [Suspect]
     Active Substance: TIRZEPATIDE
     Indication: Glucose tolerance impaired
     Dosage: 7.5 MG, UNKNOWN
     Route: 058
  42. MOUNJARO [Suspect]
     Active Substance: TIRZEPATIDE
     Indication: Glucose tolerance impaired
     Dosage: 7.5 MG, UNKNOWN
     Route: 058
  43. MOUNJARO [Suspect]
     Active Substance: TIRZEPATIDE
     Indication: Glucose tolerance impaired
     Dosage: 7.5 MG, UNKNOWN
     Route: 058
  44. MOUNJARO [Suspect]
     Active Substance: TIRZEPATIDE
     Indication: Glucose tolerance impaired
     Dosage: 7.5 MG, UNKNOWN
     Route: 058
  45. MOUNJARO [Suspect]
     Active Substance: TIRZEPATIDE
     Indication: Body mass index increased
  46. MOUNJARO [Suspect]
     Active Substance: TIRZEPATIDE
     Indication: Body mass index increased
  47. MOUNJARO [Suspect]
     Active Substance: TIRZEPATIDE
     Indication: Body mass index increased
  48. MOUNJARO [Suspect]
     Active Substance: TIRZEPATIDE
     Indication: Body mass index increased
  49. MOUNJARO [Suspect]
     Active Substance: TIRZEPATIDE
     Indication: Gestational diabetes
  50. MOUNJARO [Suspect]
     Active Substance: TIRZEPATIDE
     Indication: Gestational diabetes
  51. MOUNJARO [Suspect]
     Active Substance: TIRZEPATIDE
     Indication: Gestational diabetes
  52. MOUNJARO [Suspect]
     Active Substance: TIRZEPATIDE
     Indication: Gestational diabetes
  53. MOUNJARO [Suspect]
     Active Substance: TIRZEPATIDE
     Indication: Anxiety
  54. MOUNJARO [Suspect]
     Active Substance: TIRZEPATIDE
     Indication: Anxiety
  55. MOUNJARO [Suspect]
     Active Substance: TIRZEPATIDE
     Indication: Anxiety
  56. MOUNJARO [Suspect]
     Active Substance: TIRZEPATIDE
     Indication: Anxiety
  57. MOUNJARO [Suspect]
     Active Substance: TIRZEPATIDE
     Indication: Depression
  58. MOUNJARO [Suspect]
     Active Substance: TIRZEPATIDE
     Indication: Depression
  59. MOUNJARO [Suspect]
     Active Substance: TIRZEPATIDE
     Indication: Depression
  60. MOUNJARO [Suspect]
     Active Substance: TIRZEPATIDE
     Indication: Depression
  61. MOUNJARO [Suspect]
     Active Substance: TIRZEPATIDE
     Indication: Glucose tolerance impaired
     Dosage: 10 MG, UNKNOWN
     Route: 058
  62. MOUNJARO [Suspect]
     Active Substance: TIRZEPATIDE
     Indication: Glucose tolerance impaired
     Dosage: 10 MG, UNKNOWN
     Route: 058
  63. MOUNJARO [Suspect]
     Active Substance: TIRZEPATIDE
     Indication: Glucose tolerance impaired
     Dosage: 10 MG, UNKNOWN
     Route: 058
  64. MOUNJARO [Suspect]
     Active Substance: TIRZEPATIDE
     Indication: Glucose tolerance impaired
     Dosage: 10 MG, UNKNOWN
     Route: 058
  65. MOUNJARO [Suspect]
     Active Substance: TIRZEPATIDE
     Indication: Body mass index increased
  66. MOUNJARO [Suspect]
     Active Substance: TIRZEPATIDE
     Indication: Body mass index increased
  67. MOUNJARO [Suspect]
     Active Substance: TIRZEPATIDE
     Indication: Body mass index increased
  68. MOUNJARO [Suspect]
     Active Substance: TIRZEPATIDE
     Indication: Body mass index increased
  69. MOUNJARO [Suspect]
     Active Substance: TIRZEPATIDE
     Indication: Gestational diabetes
  70. MOUNJARO [Suspect]
     Active Substance: TIRZEPATIDE
     Indication: Gestational diabetes
  71. MOUNJARO [Suspect]
     Active Substance: TIRZEPATIDE
     Indication: Gestational diabetes
  72. MOUNJARO [Suspect]
     Active Substance: TIRZEPATIDE
     Indication: Gestational diabetes
  73. MOUNJARO [Suspect]
     Active Substance: TIRZEPATIDE
     Indication: Anxiety
  74. MOUNJARO [Suspect]
     Active Substance: TIRZEPATIDE
     Indication: Anxiety
  75. MOUNJARO [Suspect]
     Active Substance: TIRZEPATIDE
     Indication: Anxiety
  76. MOUNJARO [Suspect]
     Active Substance: TIRZEPATIDE
     Indication: Anxiety
  77. MOUNJARO [Suspect]
     Active Substance: TIRZEPATIDE
     Indication: Depression
  78. MOUNJARO [Suspect]
     Active Substance: TIRZEPATIDE
     Indication: Depression
  79. MOUNJARO [Suspect]
     Active Substance: TIRZEPATIDE
     Indication: Depression
  80. MOUNJARO [Suspect]
     Active Substance: TIRZEPATIDE
     Indication: Depression
  81. MOUNJARO [Suspect]
     Active Substance: TIRZEPATIDE
     Indication: Glucose tolerance impaired
     Dosage: 12.5 MG, UNKNOWN
     Route: 058
  82. MOUNJARO [Suspect]
     Active Substance: TIRZEPATIDE
     Indication: Glucose tolerance impaired
     Dosage: 12.5 MG, UNKNOWN
     Route: 058
  83. MOUNJARO [Suspect]
     Active Substance: TIRZEPATIDE
     Indication: Glucose tolerance impaired
     Dosage: 12.5 MG, UNKNOWN
     Route: 058
  84. MOUNJARO [Suspect]
     Active Substance: TIRZEPATIDE
     Indication: Glucose tolerance impaired
     Dosage: 12.5 MG, UNKNOWN
     Route: 058
  85. MOUNJARO [Suspect]
     Active Substance: TIRZEPATIDE
     Indication: Body mass index increased
  86. MOUNJARO [Suspect]
     Active Substance: TIRZEPATIDE
     Indication: Body mass index increased
  87. MOUNJARO [Suspect]
     Active Substance: TIRZEPATIDE
     Indication: Body mass index increased
  88. MOUNJARO [Suspect]
     Active Substance: TIRZEPATIDE
     Indication: Body mass index increased
  89. MOUNJARO [Suspect]
     Active Substance: TIRZEPATIDE
     Indication: Gestational diabetes
  90. MOUNJARO [Suspect]
     Active Substance: TIRZEPATIDE
     Indication: Gestational diabetes
  91. MOUNJARO [Suspect]
     Active Substance: TIRZEPATIDE
     Indication: Gestational diabetes
  92. MOUNJARO [Suspect]
     Active Substance: TIRZEPATIDE
     Indication: Gestational diabetes
  93. MOUNJARO [Suspect]
     Active Substance: TIRZEPATIDE
     Indication: Anxiety
  94. MOUNJARO [Suspect]
     Active Substance: TIRZEPATIDE
     Indication: Anxiety
  95. MOUNJARO [Suspect]
     Active Substance: TIRZEPATIDE
     Indication: Anxiety
  96. MOUNJARO [Suspect]
     Active Substance: TIRZEPATIDE
     Indication: Anxiety
  97. MOUNJARO [Suspect]
     Active Substance: TIRZEPATIDE
     Indication: Depression
  98. MOUNJARO [Suspect]
     Active Substance: TIRZEPATIDE
     Indication: Depression
  99. MOUNJARO [Suspect]
     Active Substance: TIRZEPATIDE
     Indication: Depression
  100. MOUNJARO [Suspect]
     Active Substance: TIRZEPATIDE
     Indication: Depression
  101. MOUNJARO [Suspect]
     Active Substance: TIRZEPATIDE
     Indication: Glucose tolerance impaired
  102. MOUNJARO [Suspect]
     Active Substance: TIRZEPATIDE
     Indication: Glucose tolerance impaired
  103. MOUNJARO [Suspect]
     Active Substance: TIRZEPATIDE
     Indication: Glucose tolerance impaired
  104. MOUNJARO [Suspect]
     Active Substance: TIRZEPATIDE
     Indication: Glucose tolerance impaired
  105. MOUNJARO [Suspect]
     Active Substance: TIRZEPATIDE
     Indication: Body mass index increased
  106. MOUNJARO [Suspect]
     Active Substance: TIRZEPATIDE
     Indication: Body mass index increased
  107. MOUNJARO [Suspect]
     Active Substance: TIRZEPATIDE
     Indication: Body mass index increased
  108. MOUNJARO [Suspect]
     Active Substance: TIRZEPATIDE
     Indication: Body mass index increased
  109. MOUNJARO [Suspect]
     Active Substance: TIRZEPATIDE
     Indication: Gestational diabetes
  110. MOUNJARO [Suspect]
     Active Substance: TIRZEPATIDE
     Indication: Gestational diabetes
  111. MOUNJARO [Suspect]
     Active Substance: TIRZEPATIDE
     Indication: Gestational diabetes
  112. MOUNJARO [Suspect]
     Active Substance: TIRZEPATIDE
     Indication: Gestational diabetes
  113. MOUNJARO [Suspect]
     Active Substance: TIRZEPATIDE
     Indication: Anxiety
  114. MOUNJARO [Suspect]
     Active Substance: TIRZEPATIDE
     Indication: Anxiety
  115. MOUNJARO [Suspect]
     Active Substance: TIRZEPATIDE
     Indication: Anxiety
  116. MOUNJARO [Suspect]
     Active Substance: TIRZEPATIDE
     Indication: Anxiety
  117. MOUNJARO [Suspect]
     Active Substance: TIRZEPATIDE
     Indication: Depression
  118. MOUNJARO [Suspect]
     Active Substance: TIRZEPATIDE
     Indication: Depression
  119. MOUNJARO [Suspect]
     Active Substance: TIRZEPATIDE
     Indication: Depression
  120. MOUNJARO [Suspect]
     Active Substance: TIRZEPATIDE
     Indication: Depression

REACTIONS (4)
  - Off label use [Unknown]
  - Incorrect dose administered [Unknown]
  - Injection site haemorrhage [Unknown]
  - Maternal exposure during pregnancy [Unknown]

NARRATIVE: CASE EVENT DATE: 20230101
